FAERS Safety Report 5715694-8 (Version None)
Quarter: 2008Q2

REPORT INFORMATION
  Report Type: 
  Country: None (occurrence: None)
  Receive Date: 20080422
  Receipt Date: 20080415
  Transmission Date: 20081010
  Serious: Yes (Other)
  Sender: FDA-Public Use
  Company Number: 2008SP006595

PATIENT
  Age: 61 Year
  Sex: Female
  Weight: 62.5964 kg

DRUGS (3)
  1. CORICIDIN HBP CHEST CONGESTION + COUGH (DEXTROMETHORPHAN HYDROBROMIDE/ [Suspect]
     Indication: PULMONARY CONGESTION
     Dosage: 10 MG;ONCE;PO
     Route: 048
     Dates: start: 20080331, end: 20080331
  2. ATENOLOL [Concomitant]
  3. ASMANEX TWISTHALER [Concomitant]

REACTIONS (3)
  - ASTHMA [None]
  - BLOOD PRESSURE INCREASED [None]
  - CONDITION AGGRAVATED [None]
